FAERS Safety Report 6852907-3 (Version None)
Quarter: 2010Q3

REPORT INFORMATION
  Report Type: 
  Country: None (occurrence: None)
  Receive Date: 20100717
  Receipt Date: 20071126
  Transmission Date: 20110219
  Serious: No
  Sender: FDA-Public Use
  Company Number: US-PFIZER INC-2007101377

PATIENT
  Sex: Female
  Weight: 63.5 kg

DRUGS (3)
  1. CHANTIX [Suspect]
     Indication: SMOKING CESSATION THERAPY
     Dates: start: 20071119
  2. SYNTHROID [Concomitant]
  3. ALLEGRA [Concomitant]

REACTIONS (5)
  - ABDOMINAL PAIN UPPER [None]
  - DYSGEUSIA [None]
  - ERUCTATION [None]
  - NAUSEA [None]
  - VOMITING [None]
